FAERS Safety Report 7352662-7 (Version None)
Quarter: 2011Q1

REPORT INFORMATION
  Report Type: 
  Country: None (occurrence: None)
  Receive Date: 20110301
  Receipt Date: 20100922
  Transmission Date: 20110831
  Serious: Yes (Other)
  Sender: FDA-Public Use
  Company Number: US-JNJFOC-20060905976

PATIENT
  Age: 59 Year
  Sex: Female
  Weight: 90.7194 kg

DRUGS (2)
  1. MOTRIN IB [Suspect]
     Indication: PAIN
     Dosage: 600-800MG AS NEEDED, ORAL
     Route: 048
     Dates: start: 20060909
  2. PEPCID [Suspect]
     Indication: PRODUCT USED FOR UNKNOWN INDICATION
     Dosage: 40 MG, 1 IN 1 TOTAL, ORAL
     Route: 048
     Dates: start: 20060922, end: 20060922

REACTIONS (3)
  - THROAT TIGHTNESS [None]
  - DYSPHAGIA [None]
  - PHARYNGEAL OEDEMA [None]
